FAERS Safety Report 17351802 (Version 1)
Quarter: 2020Q1

REPORT INFORMATION
  Report Type: Report from Study
  Country: US (occurrence: US)
  Receive Date: 20200130
  Receipt Date: 20200130
  Transmission Date: 20200409
  Serious: Yes (Other)
  Sender: FDA-Public Use
  Company Number: US-BAYER-2020-014623

PATIENT
  Age: 61 Year
  Sex: Male

DRUGS (2)
  1. ASPIRIN 81 MG [Suspect]
     Active Substance: ASPIRIN
  2. EDOXABAN [Suspect]
     Active Substance: EDOXABAN TOSYLATE

REACTIONS (3)
  - Product administration error [None]
  - Haemorrhage [None]
  - Labelled drug-drug interaction medication error [None]
